FAERS Safety Report 9319845 (Version 5)
Quarter: 2013Q4

REPORT INFORMATION
  Report Type: Report from Study
  Country: US (occurrence: US)
  Receive Date: 20130530
  Receipt Date: 20131223
  Transmission Date: 20140711
  Serious: Yes (Death, Life-Threatening, Hospitalization)
  Sender: FDA-Public Use
  Company Number: US-BRISTOL-MYERS SQUIBB COMPANY-18744086

PATIENT
  Age: 11 Year
  Sex: Female
  Weight: 44.44 kg

DRUGS (7)
  1. DASATINIB [Suspect]
     Indication: ACUTE LYMPHOCYTIC LEUKAEMIA
     Dosage: 1DF=80(UNITS NOS)?18DEC-20DEC12-80?21DEC12-8JAN13=0?9JAN13-:80UNITS NOS
     Route: 048
     Dates: start: 20121218
  2. ETOPOSIDE [Suspect]
     Indication: ACUTE LYMPHOCYTIC LEUKAEMIA
     Dates: start: 20130511, end: 20130513
  3. DEXAMETHASONE [Suspect]
     Indication: ACUTE LYMPHOCYTIC LEUKAEMIA
     Dates: start: 20130509, end: 20130513
  4. PEG-L-ASPARAGINASE [Suspect]
     Indication: ACUTE LYMPHOCYTIC LEUKAEMIA
     Dates: start: 20130514, end: 20130515
  5. CYTOSINE ARABINOSIDE [Suspect]
     Indication: ACUTE LYMPHOCYTIC LEUKAEMIA
     Dosage: 10MAY2013 TO 11MAY2013?13MAY-13MAY2013
     Dates: start: 20130510, end: 20130513
  6. METHOTREXATE [Suspect]
     Indication: ACUTE LYMPHOCYTIC LEUKAEMIA
     Dates: start: 20130513, end: 20130513
  7. HYDROCORTISONE [Suspect]
     Indication: ACUTE LYMPHOCYTIC LEUKAEMIA
     Dates: start: 20130513, end: 20130513

REACTIONS (3)
  - Sepsis [Fatal]
  - Cellulitis [Recovered/Resolved]
  - Dehydration [Recovered/Resolved]
